FAERS Safety Report 9580299 (Version 1)
Quarter: 2013Q3

REPORT INFORMATION
  Report Type: Spontaneous
  Country: FR (occurrence: None)
  Receive Date: 20130930
  Receipt Date: 20130930
  Transmission Date: 20140515
  Serious: Yes (Hospitalization)
  Sender: FDA-Public Use
  Company Number: 2013AP008263

PATIENT
  Age: 22 Year
  Sex: Female
  Weight: 50 kg

DRUGS (1)
  1. FERRIPROX [Suspect]
     Indication: THALASSAEMIA BETA
     Dates: start: 2006

REACTIONS (4)
  - Hypovitaminosis [None]
  - Nicotinic acid deficiency [None]
  - Incorrect dose administered [None]
  - Malnutrition [None]
